FAERS Safety Report 7454391 (Version 7)
Quarter: 2014Q1

REPORT INFORMATION
  Report Type: Spontaneous
  Country: FR (occurrence: FR)
  Receive Date: 20100706
  Receipt Date: 20140328
  Transmission Date: 20141002
  Serious: Yes (Hospitalization, Other)
  Sender: FDA-Public Use
  Company Number: FR-AMGEN-QUU420541

PATIENT
  Age: 49 Year
  Sex: Male
  Weight: 60 kg

DRUGS (2)
  1. NPLATE [Suspect]
     Indication: IMMUNE THROMBOCYTOPENIC PURPURA
     Dosage: 3 MUG/KG, QWK
     Route: 058
     Dates: start: 20100604, end: 20100716
  2. AUGMENTIN [Concomitant]
     Dosage: 1 G, 2 TIMES/WK
     Route: 048
     Dates: end: 20100617

REACTIONS (14)
  - Myelodysplastic syndrome [Recovering/Resolving]
  - Agranulocytosis [Recovered/Resolved]
  - Neutropenia [Unknown]
  - Bone marrow myelogram abnormal [Unknown]
  - Purpura [Unknown]
  - Haematoma [Unknown]
  - Anti-platelet antibody positive [Unknown]
  - Aplasia [Unknown]
  - Pancytopenia [Unknown]
  - Thrombocytopenia [Unknown]
  - Drug ineffective [Not Recovered/Not Resolved]
  - Myelofibrosis [Recovered/Resolved]
  - Haemoglobin decreased [Unknown]
  - Hyperhidrosis [Unknown]
